FAERS Safety Report 7138352-4 (Version None)
Quarter: 2010Q4

REPORT INFORMATION
  Report Type: 
  Country: None (occurrence: None)
  Receive Date: 20101202
  Receipt Date: 20101202
  Transmission Date: 20110411
  Serious: Yes (Life-Threatening)
  Sender: FDA-Public Use
  Company Number: None

PATIENT
  Age: 74 Year
  Sex: Male
  Weight: 91.6266 kg

DRUGS (1)
  1. PROPOXYPHENE HYDROCHLORIDE [Suspect]
     Indication: PAIN
     Dosage: ONE TAB 1 TO 2 DAILY PO
     Route: 048
     Dates: start: 20080301, end: 20101119

REACTIONS (2)
  - ASTHENIA [None]
  - DIZZINESS [None]
